FAERS Safety Report 21754400 (Version 1)
Quarter: 2022Q4

REPORT INFORMATION
  Report Type: Spontaneous
  Country: SI (occurrence: SI)
  Receive Date: 20221220
  Receipt Date: 20221220
  Transmission Date: 20230113
  Serious: Yes (Life-Threatening)
  Sender: FDA-Public Use
  Company Number: None

PATIENT
  Age: 42 Year
  Sex: Female

DRUGS (14)
  1. MYLOTARG [Suspect]
     Active Substance: GEMTUZUMAB OZOGAMICIN
     Indication: Acute leukaemia
     Dosage: 4.5 MG ON DAY 1, THEN 4.9 MG ON DAY 4 AND 7
     Route: 042
     Dates: start: 20221122, end: 20221128
  2. CYTARABINE [Suspect]
     Active Substance: CYTARABINE
     Indication: Acute leukaemia
     Dosage: 330 MG FOR 7 CONSECUTIVE DAYS
     Route: 042
     Dates: start: 20221122, end: 20221128
  3. DAUNORUBICIN [Suspect]
     Active Substance: DAUNORUBICIN
     Indication: Acute leukaemia
     Dosage: 100 MG ON DAY 1, 3, 5
     Route: 042
     Dates: start: 20221122, end: 20221126
  4. AVIBACTAM SODIUM\CEFTAZIDIME [Concomitant]
     Active Substance: AVIBACTAM SODIUM\CEFTAZIDIME
  5. AZTREONAM [Concomitant]
     Active Substance: AZTREONAM
  6. LEVOFLOXACIN [Concomitant]
     Active Substance: LEVOFLOXACIN
     Dosage: FROM THE SEVENTH DAY ONWARDS
  7. VALTREX [Concomitant]
     Active Substance: VALACYCLOVIR HYDROCHLORIDE
     Dosage: FROM THE SEVENTH DAY ONWARDS
  8. ACETAMINOPHEN [Concomitant]
     Active Substance: ACETAMINOPHEN
  9. ONDANSETRON HYDROCHLORIDE [Concomitant]
     Active Substance: ONDANSETRON HYDROCHLORIDE
  10. MEDROL [Concomitant]
     Active Substance: METHYLPREDNISOLONE
  11. CLEMASTINE FUMARATE [Concomitant]
     Active Substance: CLEMASTINE FUMARATE
  12. VANCOMYCIN [Concomitant]
     Active Substance: VANCOMYCIN
  13. MYCAMINE [Concomitant]
     Active Substance: MICAFUNGIN SODIUM
     Dosage: FROM THE SEVENTH DAY ONWARDS
  14. XANAX [Concomitant]
     Active Substance: ALPRAZOLAM

REACTIONS (1)
  - Cardiac failure acute [Recovering/Resolving]
